FAERS Safety Report 24342299 (Version 1)
Quarter: 2024Q3

REPORT INFORMATION
  Report Type: Report from Study
  Country: TN (occurrence: TN)
  Receive Date: 20240920
  Receipt Date: 20240920
  Transmission Date: 20241017
  Serious: Yes (Other)
  Sender: ABBVIE
  Company Number: TN-ABBVIE-5928727

PATIENT
  Age: 56 Year
  Sex: Female

DRUGS (3)
  1. HUMIRA [Suspect]
     Active Substance: ADALIMUMAB
     Indication: Rheumatoid arthritis
     Dosage: FORM STRENGTH: 40 MG
     Route: 058
     Dates: start: 20240805
  2. CONCOR AMLO [Concomitant]
     Indication: Cardiac disorder
     Dosage: 0.5 TABLET?START DATE TEXT: 6-7 MONTHS AGO?FORM STRENGTH: 5 MG
     Route: 048
     Dates: start: 202402
  3. ALGESIC EXTRA [Concomitant]
     Indication: Headache
     Dosage: 6 TABLET?START DATE TEXT: 5-6 YEARS AGO
     Route: 048
     Dates: start: 2018

REACTIONS (7)
  - Deafness [Not Recovered/Not Resolved]
  - Initial insomnia [Not Recovered/Not Resolved]
  - Anxiety [Not Recovered/Not Resolved]
  - Tinnitus [Not Recovered/Not Resolved]
  - Fatigue [Not Recovered/Not Resolved]
  - Limb discomfort [Not Recovered/Not Resolved]
  - Drug ineffective [Unknown]

NARRATIVE: CASE EVENT DATE: 20240101
